APPROVED DRUG PRODUCT: ISTURISA
Active Ingredient: OSILODROSTAT PHOSPHATE
Strength: EQ 5MG BASE
Dosage Form/Route: TABLET;ORAL
Application: N212801 | Product #002
Applicant: RECORDATI RARE DISEASES INC
Approved: Mar 6, 2020 | RLD: Yes | RS: No | Type: RX

PATENTS:
Patent 10709691 | Expires: Oct 12, 2035
Patent 8609862 | Expires: Jan 13, 2031
Patent 10709691 | Expires: Oct 12, 2035
Patent 8609862 | Expires: Jan 13, 2031
Patent 8835646 | Expires: Aug 23, 2026
Patent 9434754 | Expires: Jan 13, 2031
Patent 10143680 | Expires: Jul 6, 2035
Patent 8314097 | Expires: Mar 27, 2029

EXCLUSIVITY:
Code: ODE-286 | Date: Mar 6, 2027